FAERS Safety Report 26061007 (Version 2)
Quarter: 2025Q4

REPORT INFORMATION
  Report Type: Report from Study
  Country: EU (occurrence: EU)
  Receive Date: 20251118
  Receipt Date: 20251124
  Transmission Date: 20260118
  Serious: Yes (Death, Other)
  Sender: MYLAN
  Company Number: EU-SA-2025SA193149

PATIENT
  Age: 86 Year
  Sex: Female

DRUGS (20)
  1. DEXAMETHASONE [Suspect]
     Active Substance: DEXAMETHASONE
     Indication: Plasma cell myeloma refractory
     Dosage: 40 MILLIGRAM, QW
     Dates: start: 20240206, end: 20240227
  2. DEXAMETHASONE [Suspect]
     Active Substance: DEXAMETHASONE
     Dosage: 40 MILLIGRAM, BIWEEKLY
     Dates: start: 20240312, end: 20240326
  3. DEXAMETHASONE [Suspect]
     Active Substance: DEXAMETHASONE
     Dosage: 40 MILLIGRAM, BIWEEKLY
     Dates: start: 20240409, end: 20240423
  4. DEXAMETHASONE [Suspect]
     Active Substance: DEXAMETHASONE
     Dosage: 40 MILLIGRAM, BIWEEKLY
     Dates: start: 20240507, end: 20240521
  5. ISATUXIMAB [Suspect]
     Active Substance: ISATUXIMAB
     Indication: Plasma cell myeloma refractory
     Dosage: 680 MILLIGRAM, QW
     Dates: start: 20240206, end: 20240227
  6. ISATUXIMAB [Suspect]
     Active Substance: ISATUXIMAB
     Dosage: 660 MILLIGRAM, BIWEEKLY
     Dates: start: 20240312, end: 20240326
  7. ISATUXIMAB [Suspect]
     Active Substance: ISATUXIMAB
     Dosage: 660 MILLIGRAM, BIWEEKLY
     Dates: start: 20240409, end: 20240423
  8. ISATUXIMAB [Suspect]
     Active Substance: ISATUXIMAB
     Dosage: 650 MILLIGRAM, BIWEEKLY
     Dates: start: 20240507, end: 20240521
  9. POMALIDOMIDE [Suspect]
     Active Substance: POMALIDOMIDE
     Indication: Plasma cell myeloma refractory
     Dosage: 4 MILLIGRAM, QD (DAILY 21 DAY/28)
     Dates: start: 20240206, end: 20240226
  10. POMALIDOMIDE [Suspect]
     Active Substance: POMALIDOMIDE
     Dosage: 4 MILLIGRAM, QD
     Dates: start: 20240312, end: 20240401
  11. POMALIDOMIDE [Suspect]
     Active Substance: POMALIDOMIDE
     Dosage: 4 MILLIGRAM, QD
     Dates: start: 20240409, end: 20240429
  12. POMALIDOMIDE [Suspect]
     Active Substance: POMALIDOMIDE
     Dosage: 4 MILLIGRAM, QD
     Dates: start: 20240507, end: 20240526
  13. ALLOPURINOL [Concomitant]
     Active Substance: ALLOPURINOL
     Dosage: UNK
     Dates: start: 20240409, end: 20240526
  14. BACTRIM [Concomitant]
     Active Substance: SULFAMETHOXAZOLE\TRIMETHOPRIM
     Indication: Premedication
     Dosage: UNK, TIW (EVERY MONDAY, WEDNESDAY, FRIDAY)
     Dates: start: 20240206, end: 20240524
  15. VALACYCLOVIR HYDROCHLORIDE [Concomitant]
     Active Substance: VALACYCLOVIR HYDROCHLORIDE
     Indication: Premedication
     Dosage: UNK UNK, QCY
     Dates: start: 20240206, end: 20240527
  16. ELIQUIS [Concomitant]
     Active Substance: APIXABAN
     Indication: Arrhythmia
     Dosage: UNK
  17. NEBIVOLOL [Concomitant]
     Active Substance: NEBIVOLOL
     Indication: Hypertension
     Dosage: UNK
  18. FLECAINIDE [Concomitant]
     Active Substance: FLECAINIDE
     Indication: Arrhythmia
     Dosage: UNK
  19. ATACAND [Concomitant]
     Active Substance: CANDESARTAN CILEXETIL
     Indication: Hypertension
     Dosage: UNK
  20. LERCANIDIPINE [Concomitant]
     Active Substance: LERCANIDIPINE
     Indication: Hypertension
     Dosage: UNK

REACTIONS (5)
  - Death [Fatal]
  - Renal failure [Not Recovered/Not Resolved]
  - Tremor [Unknown]
  - Hypotension [Recovered/Resolved]
  - Nasopharyngitis [Recovered/Resolved]

NARRATIVE: CASE EVENT DATE: 20240503
